FAERS Safety Report 8818635 (Version 3)
Quarter: 2013Q1

REPORT INFORMATION
  Report Type: Spontaneous
  Country: GB (occurrence: GB)
  Receive Date: 20121001
  Receipt Date: 20130108
  Transmission Date: 20140127
  Serious: Yes (Other)
  Sender: FDA-Public Use
  Company Number: PHHY2012GB083040

PATIENT
  Sex: Male
  Weight: 80 kg

DRUGS (2)
  1. CIPROFLOXACIN [Suspect]
     Route: 048
     Dates: start: 20120903, end: 20120910
  2. CIPROFLOXACIN [Suspect]
     Dosage: 500 MG
     Route: 048
     Dates: start: 20120903, end: 20120910

REACTIONS (5)
  - Joint dislocation [Recovering/Resolving]
  - Tendon pain [Recovering/Resolving]
  - Arthropathy [Recovering/Resolving]
  - Arthralgia [Recovering/Resolving]
  - Pain in extremity [Recovering/Resolving]
